FAERS Safety Report 7048058-8 (Version None)
Quarter: 2010Q4

REPORT INFORMATION
  Report Type: 
  Country: None (occurrence: None)
  Receive Date: 20101015
  Receipt Date: 20101008
  Transmission Date: 20110411
  Serious: Yes (Death)
  Sender: FDA-Public Use
  Company Number: B0677066A

PATIENT
  Age: 70 Year
  Sex: Female

DRUGS (1)
  1. DEROXAT [Suspect]
     Indication: DEPRESSION
     Route: 048
     Dates: start: 20091101, end: 20100401

REACTIONS (4)
  - ANTIDEPRESSANT DRUG LEVEL INCREASED [None]
  - DEATH [None]
  - HEAD INJURY [None]
  - SUBDURAL HAEMATOMA [None]
